FAERS Safety Report 15936721 (Version 2)
Quarter: 2019Q1

REPORT INFORMATION
  Report Type: Spontaneous
  Country: US (occurrence: US)
  Receive Date: 20190208
  Receipt Date: 20190226
  Transmission Date: 20190417
  Serious: Yes (Other)
  Sender: FDA-Public Use
  Company Number: US-ACCORD-105239

PATIENT
  Age: 63 Year
  Sex: Male

DRUGS (2)
  1. CLONAZEPAM ACCORD [Suspect]
     Active Substance: CLONAZEPAM
     Indication: INSOMNIA
     Route: 048
  2. OXYCODONE/OXYCODONE HYDROCHLORIDE/OXYCODONE PECTINATE/OXYCODONE TEREPHTHALATE [Concomitant]

REACTIONS (9)
  - Rash [Not Recovered/Not Resolved]
  - Pain [Unknown]
  - Renal mass [Not Recovered/Not Resolved]
  - Coeliac disease [Not Recovered/Not Resolved]
  - Feeling abnormal [Unknown]
  - Weight decreased [Not Recovered/Not Resolved]
  - Nephrolithiasis [Not Recovered/Not Resolved]
  - Off label use [Unknown]
  - Malnutrition [Unknown]

NARRATIVE: CASE EVENT DATE: 2018
